FAERS Safety Report 8422101-3 (Version None)
Quarter: 2012Q2

REPORT INFORMATION
  Report Type: 
  Country: None (occurrence: None)
  Receive Date: 20120323
  Receipt Date: 20111214
  Transmission Date: 20120825
  Serious: Yes (Other)
  Sender: FDA-Public Use
  Company Number: 163-21880-11121963

PATIENT
  Age: 86 Year
  Sex: Female

DRUGS (13)
  1. ASPIRIN [Concomitant]
  2. REVLIMID [Suspect]
     Indication: MULTIPLE MYELOMA
     Dosage: 5 MG, DAILY X 21D/28D, PO ; 5 MG, DAILY X 21D/28D, PO
     Route: 048
     Dates: start: 20101001
  3. REVLIMID [Suspect]
     Indication: MULTIPLE MYELOMA
     Dosage: 5 MG, DAILY X 21D/28D, PO ; 5 MG, DAILY X 21D/28D, PO
     Route: 048
     Dates: start: 20110801
  4. LORAZEPAM [Concomitant]
  5. LOSARTAN POTASSIUM [Concomitant]
  6. ZOLPIDEM [Concomitant]
  7. LEVOTHYROID (LEVOTHYROXINE) [Concomitant]
  8. PAROXETINE HCL [Concomitant]
  9. OMEPRAZOLE [Concomitant]
  10. METFFORMIN HYDROCHLORIDE [Concomitant]
  11. ETODOLAC [Concomitant]
  12. OXYCODONE HCL [Concomitant]
  13. GLIPIZIDE [Concomitant]

REACTIONS (2)
  - RASH [None]
  - DIARRHOEA [None]
